FAERS Safety Report 5746497-6 (Version None)
Quarter: 2008Q2

REPORT INFORMATION
  Report Type: 
  Country: None (occurrence: None)
  Receive Date: 20080522
  Receipt Date: 20080512
  Transmission Date: 20081010
  Serious: Yes (Other)
  Sender: FDA-Public Use
  Company Number: PHHY2008CN07635

PATIENT
  Age: 22 Year
  Sex: Male

DRUGS (1)
  1. SEBIVO [Suspect]
     Route: 048

REACTIONS (2)
  - HYPOAESTHESIA [None]
  - NEURALGIA [None]
